FAERS Safety Report 8619972-4 (Version None)
Quarter: 2012Q3

REPORT INFORMATION
  Report Type: 
  Country: None (occurrence: None)
  Receive Date: 20120824
  Receipt Date: 20120815
  Transmission Date: 20120928
  Serious: Yes (Other)
  Sender: FDA-Public Use
  Company Number: US-ELI_LILLY_AND_COMPANY-US201208005322

PATIENT
  Sex: Female

DRUGS (1)
  1. CYMBALTA [Suspect]
     Indication: DEPRESSION
     Dosage: 30 MG, QD
     Dates: end: 20120809

REACTIONS (16)
  - FATIGUE [None]
  - DYSPHAGIA [None]
  - URINARY INCONTINENCE [None]
  - DYSPNOEA [None]
  - CONVULSION [None]
  - FEELING ABNORMAL [None]
  - NERVOUSNESS [None]
  - VOMITING [None]
  - URINARY RETENTION [None]
  - LIVER FUNCTION TEST ABNORMAL [None]
  - DRUG WITHDRAWAL SYNDROME [None]
  - OFF LABEL USE [None]
  - MUSCLE CONTRACTIONS INVOLUNTARY [None]
  - EPILEPSY [None]
  - LOSS OF CONSCIOUSNESS [None]
  - DEHYDRATION [None]
